FAERS Safety Report 7610692-1 (Version None)
Quarter: 2011Q3

REPORT INFORMATION
  Report Type: 
  Country: None (occurrence: None)
  Receive Date: 20110715
  Receipt Date: 20110711
  Transmission Date: 20111222
  Serious: Yes (Hospitalization, Other)
  Sender: FDA-Public Use
  Company Number: US-SANOFI-AVENTIS-2011SA044621

PATIENT
  Age: 80 Year
  Sex: Female

DRUGS (10)
  1. LANTUS [Concomitant]
  2. ALL OTHER THERAPEUTIC PRODUCTS [Suspect]
     Route: 051
     Dates: start: 20101108
  3. METFORMIN HCL [Concomitant]
  4. LOVENOX [Suspect]
     Route: 065
  5. ALL OTHER THERAPEUTIC PRODUCTS [Suspect]
     Route: 051
     Dates: start: 20101108, end: 20101213
  6. PRILOSEC [Concomitant]
  7. ATENOLOL [Concomitant]
  8. FOLIC ACID [Concomitant]
  9. CALCIUM/VITAMIN D [Concomitant]
  10. LEXAPRO [Concomitant]

REACTIONS (6)
  - LOSS OF CONSCIOUSNESS [None]
  - SUBDURAL HAEMATOMA [None]
  - MOTOR DYSFUNCTION [None]
  - APHASIA [None]
  - FALL [None]
  - HEMIPARESIS [None]
